FAERS Safety Report 7177715-8 (Version None)
Quarter: 2010Q4

REPORT INFORMATION
  Report Type: 
  Country: None (occurrence: None)
  Receive Date: 20101123
  Receipt Date: 20100811
  Transmission Date: 20110411
  Serious: No
  Sender: FDA-Public Use
  Company Number: 017144

PATIENT
  Sex: Female
  Weight: 102 kg

DRUGS (6)
  1. CIMZIA [Suspect]
     Indication: RHEUMATOID ARTHRITIS
     Dosage: (400 MG 1X/2 WEEKS SUBCUTANEOUS)
     Route: 058
     Dates: start: 20100401
  2. IMURAN [Concomitant]
  3. TRAMADOL [Concomitant]
  4. ZOCOR [Concomitant]
  5. FISH OIL [Concomitant]
  6. VITAMINS NOS [Concomitant]

REACTIONS (3)
  - ABDOMINAL PAIN [None]
  - ALOPECIA [None]
  - BLOOD GLUCOSE INCREASED [None]
